FAERS Safety Report 10066704 (Version 1)
Quarter: 2014Q2

REPORT INFORMATION
  Report Type: Spontaneous
  Country: US (occurrence: US)
  Receive Date: 20140408
  Receipt Date: 20140408
  Transmission Date: 20141212
  Serious: Yes (Other)
  Sender: FDA-Public Use
  Company Number: US-BAXTER-2014BAX016781

PATIENT
  Age: 63 Year
  Sex: Female
  Weight: 49.94 kg

DRUGS (2)
  1. TISSEEL KIT VH S/D [Suspect]
     Indication: FISTULA REPAIR
     Route: 065
     Dates: start: 20140222, end: 20140222
  2. TISSEEL KIT VH S/D [Suspect]
     Indication: OFF LABEL USE

REACTIONS (5)
  - Impaired healing [Recovering/Resolving]
  - Post procedural complication [Recovering/Resolving]
  - Incision site inflammation [Recovering/Resolving]
  - Incision site oedema [Recovering/Resolving]
  - Incision site complication [Recovering/Resolving]
